FAERS Safety Report 6103152-0 (Version None)
Quarter: 2009Q1

REPORT INFORMATION
  Report Type: 
  Country: None (occurrence: None)
  Receive Date: 20090305
  Receipt Date: 20090220
  Transmission Date: 20090719
  Serious: Yes (Other)
  Sender: FDA-Public Use
  Company Number: GB-PFIZER INC-2009177460

PATIENT

DRUGS (2)
  1. CETIRIZINE HCL [Suspect]
     Indication: SWELLING
     Dosage: UNK
     Dates: start: 20080201
  2. ROGAINE [Suspect]
     Indication: ALOPECIA
     Dosage: 1 ML, 2X/DAY
     Route: 061
     Dates: start: 20080128, end: 20080201

REACTIONS (10)
  - AURICULAR SWELLING [None]
  - CONDITION AGGRAVATED [None]
  - DISCOMFORT [None]
  - ERYTHEMA [None]
  - EYE SWELLING [None]
  - HYPERSENSITIVITY [None]
  - PRURITUS [None]
  - RASH [None]
  - SKIN DISORDER [None]
  - SWELLING [None]
